FAERS Safety Report 17134400 (Version 1)
Quarter: 2019Q4

REPORT INFORMATION
  Report Type: Spontaneous
  Country: US (occurrence: US)
  Receive Date: 20191119
  Receipt Date: 20191119
  Transmission Date: 20200122
  Serious: Yes (Hospitalization)
  Sender: FDA-Public Use
  Company Number: None

PATIENT
  Age: 68 Year
  Sex: Male
  Weight: 83 kg

DRUGS (2)
  1. NAPROXEN. [Suspect]
     Active Substance: NAPROXEN
     Indication: PAIN
     Dosage: ?          OTHER DOSE:TAKE ONE TAB;?
     Route: 048
     Dates: start: 20171226, end: 20191002
  2. NAPROXEN. [Suspect]
     Active Substance: NAPROXEN
     Indication: HYPERTENSION
     Dosage: ?          OTHER DOSE:TAKE ONE TAB;?
     Route: 048
     Dates: start: 20171226, end: 20191002

REACTIONS (1)
  - Acute kidney injury [None]

NARRATIVE: CASE EVENT DATE: 20191002
